FAERS Safety Report 9334515 (Version 1)
Quarter: 2013Q2

REPORT INFORMATION
  Report Type: Spontaneous
  Country: US (occurrence: US)
  Receive Date: 20130606
  Receipt Date: 20130606
  Transmission Date: 20140414
  Serious: No
  Sender: FDA-Public Use
  Company Number: US-AMGEN-USASP2013030911

PATIENT
  Age: 71 Year
  Sex: Female

DRUGS (8)
  1. PROLIA [Suspect]
     Indication: OSTEOPOROSIS POSTMENOPAUSAL
     Dosage: UNK
     Dates: start: 201211
  2. DICLOFENAC [Concomitant]
  3. MUSCLE RELAXANTS [Concomitant]
  4. CENTRUM SILVER                     /02363801/ [Concomitant]
  5. CALCIUM [Concomitant]
  6. VICODIN [Concomitant]
  7. VITAMIN D                          /00318501/ [Concomitant]
     Indication: VITAMIN D DEFICIENCY
     Dosage: 50000 IU, QWK
     Dates: start: 2012
  8. ANTIHYPERTENSIVES [Concomitant]

REACTIONS (8)
  - Spinal disorder [Unknown]
  - Toothache [Recovered/Resolved]
  - Arthritis [Unknown]
  - Renal cyst [Unknown]
  - Muscle tightness [Unknown]
  - Myalgia [Unknown]
  - Back pain [Unknown]
  - Pain in extremity [Unknown]
